FAERS Safety Report 11072151 (Version 1)
Quarter: 2015Q2

REPORT INFORMATION
  Report Type: Spontaneous
  Country: US (occurrence: None)
  Receive Date: 20150427
  Receipt Date: 20150427
  Transmission Date: 20150821
  Serious: Yes (Hospitalization)
  Sender: FDA-Public Use
  Company Number: None

PATIENT
  Age: 63 Year
  Sex: Female
  Weight: 76.4 kg

DRUGS (11)
  1. GABAPENTIN. [Concomitant]
     Active Substance: GABAPENTIN
  2. EXPAREL [Suspect]
     Active Substance: BUPIVACAINE
     Indication: ANALGESIC THERAPY
     Dosage: 266 MG (20ML) IN EACH KNEE ONCE SURGICAL SITE INFILTRATION
     Dates: start: 20150331, end: 20150331
  3. DEXTROSE 3% [Concomitant]
  4. CEFAZOLIN [Concomitant]
     Active Substance: CEFAZOLIN
  5. CELECOXIB. [Concomitant]
     Active Substance: CELECOXIB
  6. OXYCODONE ER [Concomitant]
  7. TRANEXAMIC ACID. [Concomitant]
     Active Substance: TRANEXAMIC ACID
  8. NACL [Concomitant]
     Active Substance: SODIUM CHLORIDE
  9. EXPAREL [Suspect]
     Active Substance: BUPIVACAINE
     Indication: POSTOPERATIVE CARE
     Dosage: 266 MG (20ML) IN EACH KNEE ONCE SURGICAL SITE INFILTRATION
     Dates: start: 20150331, end: 20150331
  10. BETADINE [Concomitant]
     Active Substance: POVIDONE-IODINE
  11. BUPIVACAINE EPINEPHRINE (MARCAINE-EPI) [Concomitant]

REACTIONS (3)
  - Hypokinesia [None]
  - Delayed recovery from anaesthesia [None]
  - Aphasia [None]

NARRATIVE: CASE EVENT DATE: 20150331
